FAERS Safety Report 9770753 (Version 1)
Quarter: 2013Q4

REPORT INFORMATION
  Report Type: Spontaneous
  Country: US (occurrence: US)
  Receive Date: 20131218
  Receipt Date: 20131218
  Transmission Date: 20140711
  Serious: Yes (Hospitalization, Other)
  Sender: FDA-Public Use
  Company Number: US-ROXANE LABORATORIES, INC.-2013-RO-01970RO

PATIENT
  Age: 29 Year
  Sex: Male

DRUGS (3)
  1. METHOTREXATE [Suspect]
     Indication: PSORIASIS
  2. PREDNISONE [Suspect]
     Indication: DERMATITIS BULLOUS
     Dosage: 40 MG
     Route: 048
  3. METHYLPREDNISOLONE [Concomitant]
     Indication: DERMATITIS BULLOUS
     Dosage: 125 MG
     Route: 042

REACTIONS (2)
  - Dermatitis bullous [Unknown]
  - Staphylococcal impetigo [Unknown]
